FAERS Safety Report 5403835-1 (Version None)
Quarter: 2007Q3

REPORT INFORMATION
  Report Type: 
  Country: None (occurrence: None)
  Receive Date: 20070802
  Receipt Date: 20070723
  Transmission Date: 20080115
  Serious: Yes (Hospitalization)
  Sender: FDA-Public Use
  Company Number: ES-AVENTIS-200713672EU

PATIENT
  Age: 56 Year
  Sex: Female

DRUGS (3)
  1. SEGURIL                            /00032601/ [Suspect]
     Indication: PROPHYLAXIS
     Route: 048
     Dates: end: 20070228
  2. TRANKIMAZIN [Suspect]
     Route: 048
     Dates: start: 20070222, end: 20070228
  3. BOI K [Concomitant]
     Indication: PROPHYLAXIS
     Dosage: DOSE: 1 TAB
     Route: 048
     Dates: end: 20070228

REACTIONS (2)
  - DRUG INTERACTION [None]
  - ENCEPHALOPATHY [None]
